FAERS Safety Report 6091763-0 (Version None)
Quarter: 2009Q1

REPORT INFORMATION
  Report Type: 
  Country: None (occurrence: None)
  Receive Date: 20090225
  Receipt Date: 20080529
  Transmission Date: 20090719
  Serious: No
  Sender: FDA-Public Use
  Company Number: A0730208A

PATIENT
  Sex: Female

DRUGS (1)
  1. VALTREX [Suspect]
     Indication: GENITAL HERPES
     Dosage: 500MG PER DAY

REACTIONS (3)
  - ACCIDENTAL EXPOSURE [None]
  - VAGINAL INFECTION [None]
  - VULVOVAGINAL PRURITUS [None]
